FAERS Safety Report 23779735 (Version 1)
Quarter: 2024Q2

REPORT INFORMATION
  Report Type: Spontaneous
  Country: US (occurrence: None)
  Receive Date: 20240424
  Receipt Date: 20240424
  Transmission Date: 20240716
  Serious: Yes (Hospitalization)
  Sender: FDA-Public Use
  Company Number: None

PATIENT
  Age: 73 Year
  Sex: Male
  Weight: 119 kg

DRUGS (2)
  1. EMPAGLIFLOZIN [Suspect]
     Active Substance: EMPAGLIFLOZIN
     Indication: Diabetes mellitus
     Dosage: FREQUENCY : DAILY;?
     Route: 048
     Dates: start: 20230225
  2. HYDROCHLOROTHIAZIDE\LISINOPRIL [Suspect]
     Active Substance: HYDROCHLOROTHIAZIDE\LISINOPRIL
     Dosage: OTHER QUANTITY : 12.5/20MG;?FREQUENCY : DAILY;?
     Route: 048
     Dates: start: 20210410, end: 20230227

REACTIONS (10)
  - Hyperkalaemia [None]
  - Renal injury [None]
  - Dyspnoea [None]
  - Fatigue [None]
  - Therapy interrupted [None]
  - Bradycardia [None]
  - Electrocardiogram abnormal [None]
  - Middle insomnia [None]
  - Hypovolaemia [None]
  - Glomerular filtration rate decreased [None]

NARRATIVE: CASE EVENT DATE: 20230227
